FAERS Safety Report 5577332-7 (Version None)
Quarter: 2007Q4

REPORT INFORMATION
  Report Type: 
  Country: None (occurrence: None)
  Receive Date: 20071228
  Receipt Date: 20071217
  Transmission Date: 20080405
  Serious: Yes (Death, Other)
  Sender: FDA-Public Use
  Company Number: DE-PFIZER INC-2007105771

PATIENT
  Age: 67 Year
  Sex: Female

DRUGS (3)
  1. ANTITHYMOCYTE IMMUNOGLOBULIN SOLUTION, STERILE [Suspect]
  2. CYCLOPHOSPHAMIDE [Suspect]
  3. FLUDARABINE PHOSPHATE [Suspect]

REACTIONS (12)
  - AMAUROSIS [None]
  - CEREBRAL INFARCTION [None]
  - COMA [None]
  - CYTOMEGALOVIRUS TEST POSITIVE [None]
  - ENCEPHALITIS [None]
  - EPSTEIN-BARR VIRUS TEST POSITIVE [None]
  - MYELITIS [None]
  - NERVOUS SYSTEM DISORDER [None]
  - PARAPARESIS [None]
  - RESPIRATORY FAILURE [None]
  - SEPTIC SHOCK [None]
  - T-CELL DEPLETION [None]
